FAERS Safety Report 7607171-4 (Version None)
Quarter: 2011Q3

REPORT INFORMATION
  Report Type: 
  Country: None (occurrence: None)
  Receive Date: 20110713
  Receipt Date: 20110702
  Transmission Date: 20111222
  Serious: Yes (Hospitalization, Other)
  Sender: FDA-Public Use
  Company Number: IT-ELI_LILLY_AND_COMPANY-IT201107000677

PATIENT
  Age: 87 Year
  Sex: Female

DRUGS (4)
  1. FORTEO [Suspect]
     Indication: OSTEOPOROSIS
     Dosage: 20 UG, QD
     Route: 058
     Dates: start: 20100701
  2. ANTIHYPERTENSIVES [Concomitant]
  3. ORAL ANTIDIABETICS [Concomitant]
  4. VITAMIN B NOS [Concomitant]

REACTIONS (1)
  - PANCREATITIS [None]
